FAERS Safety Report 25959496 (Version 2)
Quarter: 2025Q4

REPORT INFORMATION
  Report Type: Spontaneous
  Country: JP (occurrence: JP)
  Receive Date: 20251026
  Receipt Date: 20251230
  Transmission Date: 20260117
  Serious: Yes (Hospitalization, Other)
  Sender: MERCK SHARP & DOHME LLC
  Company Number: JP-009507513-2341470

PATIENT
  Age: 8 Decade
  Sex: Male

DRUGS (1)
  1. WELIREG [Suspect]
     Active Substance: BELZUTIFAN
     Indication: Renal cell carcinoma stage IV
     Route: 048
     Dates: start: 20251006, end: 20251020

REACTIONS (2)
  - Malignant neoplasm progression [Unknown]
  - Hypoxia [Unknown]

NARRATIVE: CASE EVENT DATE: 20251001
